FAERS Safety Report 12956000 (Version 1)
Quarter: 2016Q4

REPORT INFORMATION
  Report Type: Spontaneous
  Country: US (occurrence: US)
  Receive Date: 20161118
  Receipt Date: 20161118
  Transmission Date: 20170207
  Serious: Yes (Other)
  Sender: FDA-Public Use
  Company Number: US-TEVA-713087ACC

PATIENT
  Sex: Female

DRUGS (1)
  1. PARAGARD T 380A [Suspect]
     Active Substance: COPPER
     Indication: CONTRACEPTION
     Dates: start: 20141024, end: 20161107

REACTIONS (4)
  - Device breakage [Unknown]
  - Embedded device [Unknown]
  - Pregnancy on contraceptive [Unknown]
  - Exposure during pregnancy [Unknown]
